FAERS Safety Report 5709014-2 (Version None)
Quarter: 2008Q2

REPORT INFORMATION
  Report Type: 
  Country: None (occurrence: None)
  Receive Date: 20080418
  Receipt Date: 20080404
  Transmission Date: 20081010
  Serious: Yes (Death, Hospitalization)
  Sender: FDA-Public Use
  Company Number: FR-BAYER-200815984GPV

PATIENT
  Age: 89 Year
  Sex: Female

DRUGS (8)
  1. CIPROFLOXACIN HCL [Suspect]
     Indication: INFECTION
     Dosage: UNIT DOSE: 500 MG
     Route: 048
     Dates: start: 20080202, end: 20080226
  2. BACTRIM [Suspect]
     Indication: INFECTION
     Route: 048
     Dates: start: 20080202, end: 20080226
  3. RIFADIN [Concomitant]
     Indication: INFECTION
     Route: 065
     Dates: start: 20080201, end: 20080205
  4. DALACINE [Concomitant]
     Indication: INFECTION
     Route: 065
     Dates: start: 20080201, end: 20080205
  5. DOLIPRANE [Concomitant]
     Indication: INFECTION
     Route: 048
     Dates: start: 20080202, end: 20080205
  6. SEROPLEX [Concomitant]
     Indication: DRUG USE FOR UNKNOWN INDICATION
     Route: 065
     Dates: end: 20080308
  7. ARICEPT [Concomitant]
     Indication: DRUG USE FOR UNKNOWN INDICATION
     Route: 065
     Dates: end: 20080308
  8. CATAPRES [Concomitant]
     Indication: DRUG USE FOR UNKNOWN INDICATION
     Route: 065
     Dates: end: 20080308

REACTIONS (3)
  - RASH PAPULAR [None]
  - SKIN LESION [None]
  - STEVENS-JOHNSON SYNDROME [None]
